FAERS Safety Report 4401878-8 (Version None)
Quarter: 2004Q3

REPORT INFORMATION
  Report Type: 
  Country: None (occurrence: None)
  Receive Date: 20040714
  Receipt Date: 20040601
  Transmission Date: 20050211
  Serious: Yes (Other)
  Sender: FDA-Public Use
  Company Number: 2004-04-1315

PATIENT
  Age: 7 Year
  Sex: Female

DRUGS (5)
  1. CLARITIN [Suspect]
     Indication: COUGH
     Dosage: 2 TSP PO ORAL
     Route: 048
     Dates: start: 20040419, end: 20040419
  2. CLARITIN [Suspect]
     Indication: NASAL CONGESTION
     Dosage: 2 TSP PO ORAL
     Route: 048
     Dates: start: 20040419, end: 20040419
  3. CLARITIN [Suspect]
     Indication: RHINORRHOEA
     Dosage: 2 TSP PO ORAL
     Route: 048
     Dates: start: 20040419, end: 20040419
  4. . [Concomitant]
  5. ZANTAC [Concomitant]

REACTIONS (2)
  - CONVULSION [None]
  - VOMITING [None]
